FAERS Safety Report 4338861-7 (Version None)
Quarter: 2004Q2

REPORT INFORMATION
  Report Type: 
  Country: None (occurrence: None)
  Receive Date: 20040409
  Receipt Date: 20040325
  Transmission Date: 20050107
  Serious: Yes (Death, Hospitalization)
  Sender: FDA-Public Use
  Company Number: 2004-06777

PATIENT
  Age: 43 Year
  Sex: Male
  Weight: 37 kg

DRUGS (12)
  1. VIREAD [Suspect]
     Indication: HIV INFECTION
     Dosage: 300 MG, ONCE A DAY, ORAL
     Route: 048
     Dates: start: 20030101, end: 20031201
  2. VIREAD [Suspect]
     Indication: PNEUMOCYSTIS CARINII PNEUMONIA
     Dosage: 300 MG, ONCE A DAY, ORAL
     Route: 048
     Dates: start: 20030101, end: 20031201
  3. VIREAD [Suspect]
     Indication: PROPHYLAXIS
     Dosage: 300 MG, ONCE A DAY, ORAL
     Route: 048
     Dates: start: 20030101, end: 20031201
  4. BACTRIM [Suspect]
     Dosage: 960 MG, 3 TIMES WEEKLY, ORAL
     Route: 048
     Dates: start: 20040109, end: 20040201
  5. LAMIVUDINE (LAMIVUDINE) [Concomitant]
  6. ATAZANAVIR (ATAZANAVIR) [Concomitant]
  7. RITONAVIR (RITONAVIR) [Concomitant]
  8. AVELOX [Concomitant]
  9. CLARITHROMYCIN [Concomitant]
  10. RIFABUTIN (RIFABUTIN) [Concomitant]
  11. PRIMAXIN [Concomitant]
  12. DIFLUCAN [Concomitant]

REACTIONS (21)
  - AIDS ENCEPHALOPATHY [None]
  - ANAEMIA [None]
  - BIOPSY LIVER ABNORMAL [None]
  - CACHEXIA [None]
  - DEHYDRATION [None]
  - DEPRESSED LEVEL OF CONSCIOUSNESS [None]
  - DRUG TOXICITY [None]
  - DUODENITIS [None]
  - GAMMA-GLUTAMYLTRANSFERASE INCREASED [None]
  - GENERAL PHYSICAL HEALTH DETERIORATION [None]
  - HEPATIC ENZYME INCREASED [None]
  - LEUKOPENIA [None]
  - MULTI-ORGAN FAILURE [None]
  - OTITIS EXTERNA [None]
  - PANCREATITIS [None]
  - PANCYTOPENIA [None]
  - PARVOVIRUS B19 SEROLOGY POSITIVE [None]
  - RENAL FAILURE ACUTE [None]
  - SEPSIS [None]
  - SKIN PAPILLOMA [None]
  - SOMNOLENCE [None]
